FAERS Safety Report 7148263-6 (Version None)
Quarter: 2010Q4

REPORT INFORMATION
  Report Type: 
  Country: None (occurrence: None)
  Receive Date: 20101209
  Receipt Date: 20101207
  Transmission Date: 20110411
  Serious: Yes (Death, Other)
  Sender: FDA-Public Use
  Company Number: PHHY2010US69662

PATIENT
  Sex: Female
  Weight: 54.43 kg

DRUGS (9)
  1. EXJADE [Suspect]
     Indication: MYELODYSPLASTIC SYNDROME
     Dosage: 1000 MG DAILY
     Dates: start: 20100729
  2. CARAFATE [Concomitant]
  3. MIRALAX [Concomitant]
  4. METOPROLOL [Concomitant]
  5. MILK OF MAGNESIA [Concomitant]
  6. NEXIUM [Concomitant]
  7. LEVOTHYROXINE SODIUM [Concomitant]
  8. DIGOXIN [Concomitant]
  9. VESICARE [Concomitant]

REACTIONS (10)
  - AMNESIA [None]
  - ASTHENIA [None]
  - DEATH [None]
  - DECREASED APPETITE [None]
  - DIARRHOEA [None]
  - DYSPNOEA [None]
  - FATIGUE [None]
  - HYPOAESTHESIA [None]
  - SYNCOPE [None]
  - VOMITING [None]
